FAERS Safety Report 11627284 (Version 1)
Quarter: 2015Q4

REPORT INFORMATION
  Report Type: Spontaneous
  Country: US (occurrence: US)
  Receive Date: 20151013
  Receipt Date: 20151013
  Transmission Date: 20160304
  Serious: Yes (Hospitalization)
  Sender: FDA-Public Use
  Company Number: US-BAXTER-2015BAX054359

PATIENT
  Age: 54 Year
  Sex: Female

DRUGS (1)
  1. DIANEAL LOW CALCIUM PERITONEAL DIALYSIS SOLUTION WITH DEXTROSE [Suspect]
     Active Substance: CALCIUM CHLORIDE\DEXTROSE\MAGNESIUM CHLORIDE\SODIUM CHLORIDE\SODIUM LACTATE
     Indication: CHRONIC KIDNEY DISEASE
     Route: 033

REACTIONS (7)
  - Dysstasia [Recovering/Resolving]
  - Poor peripheral circulation [Recovering/Resolving]
  - Pulse absent [Recovering/Resolving]
  - Blood pressure abnormal [Recovering/Resolving]
  - Clostridium difficile infection [Recovering/Resolving]
  - Calcinosis [Recovering/Resolving]
  - Blood pressure immeasurable [Recovering/Resolving]

NARRATIVE: CASE EVENT DATE: 20150929
